FAERS Safety Report 24890994 (Version 2)
Quarter: 2025Q1

REPORT INFORMATION
  Report Type: Report from Study
  Country: US (occurrence: US)
  Receive Date: 20250127
  Receipt Date: 20250313
  Transmission Date: 20250409
  Serious: No
  Sender: MERCK SHARP & DOHME LLC
  Company Number: US-009507513-2501USA009416

PATIENT
  Sex: Female
  Weight: 72.562 kg

DRUGS (23)
  1. WINREVAIR [Suspect]
     Active Substance: SOTATERCEPT-CSRK
     Indication: Product used for unknown indication
     Route: 065
  2. WINREVAIR [Suspect]
     Active Substance: SOTATERCEPT-CSRK
  3. WINREVAIR [Suspect]
     Active Substance: SOTATERCEPT-CSRK
  4. WINREVAIR [Suspect]
     Active Substance: SOTATERCEPT-CSRK
  5. WINREVAIR [Suspect]
     Active Substance: SOTATERCEPT-CSRK
  6. WINREVAIR [Suspect]
     Active Substance: SOTATERCEPT-CSRK
  7. WINREVAIR [Suspect]
     Active Substance: SOTATERCEPT-CSRK
  8. WINREVAIR [Suspect]
     Active Substance: SOTATERCEPT-CSRK
  9. ORENITRAM [Suspect]
     Active Substance: TREPROSTINIL
     Indication: Pulmonary arterial hypertension
     Dosage: DOSE DESCRIPTION : 0.375 MILLIGRAM (1 TABLET OF 0.125 MG AND 0.25 MG EACH), Q8H, ORAL USE?DAILY D...
     Route: 048
  10. TADALAFIL [Concomitant]
     Active Substance: TADALAFIL
  11. FUROSEMIDE [Concomitant]
     Active Substance: FUROSEMIDE
  12. MIDODRINE HYDROCHLORIDE [Concomitant]
     Active Substance: MIDODRINE HYDROCHLORIDE
  13. SUMATRIPTAN SUCCINATE [Concomitant]
     Active Substance: SUMATRIPTAN SUCCINATE
  14. QUETIAPINE FUMARATE [Concomitant]
     Active Substance: QUETIAPINE FUMARATE
  15. OPSUMIT [Concomitant]
     Active Substance: MACITENTAN
  16. POTASSIUM CHLORIDE [Concomitant]
     Active Substance: POTASSIUM CHLORIDE
  17. ALBUTEROL SULFATE [Concomitant]
     Active Substance: ALBUTEROL SULFATE
  18. RISPERDAL CONSTA [Concomitant]
     Active Substance: RISPERIDONE
  19. UPTRAVI [Concomitant]
     Active Substance: SELEXIPAG
  20. MUCINEX [Concomitant]
     Active Substance: GUAIFENESIN
  21. OXYGEN [Concomitant]
     Active Substance: OXYGEN
  22. BUTALBITAL, ACETAMINOPHEN, AND CAFFEINE [Concomitant]
     Active Substance: ACETAMINOPHEN\BUTALBITAL\CAFFEINE
  23. NICOTINE [Concomitant]
     Active Substance: NICOTINE

REACTIONS (7)
  - Injection site irritation [Unknown]
  - Product container issue [Unknown]
  - Injection site pruritus [Unknown]
  - Injection site erythema [Unknown]
  - Injection site warmth [Unknown]
  - Inappropriate schedule of product administration [Unknown]
  - Injection site mass [Recovered/Resolved]
